FAERS Safety Report 6139577-7 (Version None)
Quarter: 2009Q1

REPORT INFORMATION
  Report Type: 
  Country: None (occurrence: None)
  Receive Date: 20090330
  Receipt Date: 20090323
  Transmission Date: 20090719
  Serious: Yes (Other)
  Sender: FDA-Public Use
  Company Number: 188888USA

PATIENT
  Age: 66 Year
  Sex: Female
  Weight: 58.9676 kg

DRUGS (3)
  1. CENESTIN [Suspect]
     Indication: AMNESIA
     Dosage: 1 TABLET (1 IN 1 D), ORAL
     Route: 048
     Dates: end: 20090201
  2. CENESTIN [Suspect]
     Indication: HYSTERECTOMY
     Dosage: 1 TABLET (1 IN 1 D), ORAL
     Route: 048
     Dates: end: 20090201
  3. FOSAMAX [Concomitant]

REACTIONS (2)
  - CALCINOSIS [None]
  - RASH [None]
